FAERS Safety Report 5390533-6 (Version None)
Quarter: 2007Q3

REPORT INFORMATION
  Report Type: 
  Country: None (occurrence: None)
  Receive Date: 20070718
  Receipt Date: 20070518
  Transmission Date: 20080115
  Serious: No
  Sender: FDA-Public Use
  Company Number: US-KINGPHARMUSA00001-K200700617

PATIENT

DRUGS (1)
  1. LEVOXYL [Suspect]
     Indication: HYPOTHYROIDISM
     Dosage: 25 MCG, QD
     Route: 048

REACTIONS (10)
  - ASTHENIA [None]
  - BLOOD THYROID STIMULATING HORMONE ABNORMAL [None]
  - COGNITIVE DISORDER [None]
  - DYSARTHRIA [None]
  - DYSPNOEA [None]
  - HEART RATE INCREASED [None]
  - MUSCULOSKELETAL DISCOMFORT [None]
  - NIGHTMARE [None]
  - PRURITUS [None]
  - URTICARIA [None]
